FAERS Safety Report 5596419-6 (Version None)
Quarter: 2007Q4

REPORT INFORMATION
  Report Type: 
  Country: None (occurrence: None)
  Receive Date: 20071218
  Receipt Date: 20070712
  Transmission Date: 20080405
  Serious: Yes (Hospitalization)
  Sender: FDA-Public Use
  Company Number: 2007058149

PATIENT
  Age: 57 Year
  Sex: Female
  Weight: 62.6 kg

DRUGS (5)
  1. BEXTRA [Suspect]
     Indication: PAIN
     Dosage: 10 MG (10 MG, 1 IN 1 D)
     Dates: start: 20020601, end: 20030901
  2. ASPIRIN [Concomitant]
  3. CELEBREX [Concomitant]
  4. OXYCONTIN [Concomitant]
  5. VIOXX [Concomitant]

REACTIONS (1)
  - DEEP VEIN THROMBOSIS [None]
